FAERS Safety Report 23592038 (Version 1)
Quarter: 2024Q1

REPORT INFORMATION
  Report Type: Report from Study
  Country: US (occurrence: US)
  Receive Date: 20240304
  Receipt Date: 20240304
  Transmission Date: 20240409
  Serious: Yes (Death, Hospitalization, Other)
  Sender: FDA-Public Use
  Company Number: US-ABBVIE-5661936

PATIENT
  Sex: Male
  Weight: 66 kg

DRUGS (8)
  1. CREON [Suspect]
     Active Substance: PANCRELIPASE AMYLASE\PANCRELIPASE LIPASE\PANCRELIPASE PROTEASE
     Indication: Pancreatic failure
     Dosage: FORM STRENGTH: 24000 UNIT?FREQUENCY TEXT: 1 CAPSULE WITH EACH MEAL 3 TIMES A DAY
     Route: 048
     Dates: end: 20240211
  2. CALCIUM ACETATE [Concomitant]
     Active Substance: CALCIUM ACETATE
     Indication: Product used for unknown indication
  3. ASCORBIC ACID\BIOTIN\CALCIUM PANTOTHENATE\CYANOCOBALAMIN\FOLIC ACID\NI [Concomitant]
     Active Substance: ASCORBIC ACID\BIOTIN\CALCIUM PANTOTHENATE\CYANOCOBALAMIN\FOLIC ACID\NIACINAMIDE\PYRIDOXINE HYDROCHLO
     Indication: Product used for unknown indication
  4. EUTHYROX [Concomitant]
     Active Substance: LEVOTHYROXINE SODIUM
     Indication: Product used for unknown indication
  5. LIPITOR [Concomitant]
     Active Substance: ATORVASTATIN CALCIUM
     Indication: Product used for unknown indication
  6. DIGOXIN [Concomitant]
     Active Substance: DIGOXIN
     Indication: Product used for unknown indication
  7. MINERALS\VITAMINS [Concomitant]
     Active Substance: MINERALS\VITAMINS
     Indication: Product used for unknown indication
  8. PROTONIX [Concomitant]
     Active Substance: PANTOPRAZOLE SODIUM
     Indication: Product used for unknown indication

REACTIONS (7)
  - Sepsis [Fatal]
  - Hypotension [Not Recovered/Not Resolved]
  - Benign renal neoplasm [Recovered/Resolved]
  - Fall [Recovered/Resolved]
  - Pneumonia [Fatal]
  - Skin ulcer [Recovered/Resolved]
  - End stage renal disease [Fatal]

NARRATIVE: CASE EVENT DATE: 20160101
